FAERS Safety Report 20031977 (Version 3)
Quarter: 2021Q4

REPORT INFORMATION
  Report Type: Report from Study
  Country: CH (occurrence: CH)
  Receive Date: 20211103
  Receipt Date: 20211124
  Transmission Date: 20220304
  Serious: Yes (Death, Other)
  Sender: FDA-Public Use
  Company Number: CH-ABBVIE-21K-151-4141996-00

PATIENT
  Sex: Female

DRUGS (2)
  1. CARBIDOPA\LEVODOPA [Suspect]
     Active Substance: CARBIDOPA\LEVODOPA
     Indication: Parkinson^s disease
     Route: 050
     Dates: start: 20160105
  2. CARBIDOPA\LEVODOPA [Suspect]
     Active Substance: CARBIDOPA\LEVODOPA
     Dosage: FREQUENCY TEXT 16H THERAPY.?MD: 7.5 ML, CRD: 6.5 ML/H, CRN: 0 ML/H, ED: 3.0 ML.
     Route: 050
     Dates: start: 20210726

REACTIONS (9)
  - Parkinson^s disease [Fatal]
  - General physical health deterioration [Fatal]
  - Eating disorder [Unknown]
  - Fluid intake reduced [Unknown]
  - Respiratory failure [Fatal]
  - Sarcopenia [Fatal]
  - Cachexia [Fatal]
  - Cardiac failure [Fatal]
  - Dysphagia [Not Recovered/Not Resolved]
